FAERS Safety Report 23230229 (Version 1)
Quarter: 2023Q4

REPORT INFORMATION
  Report Type: Spontaneous
  Country: US (occurrence: None)
  Receive Date: 20231122
  Receipt Date: 20231122
  Transmission Date: 20240109
  Serious: Yes (Life-Threatening, Hospitalization, Disabling, Other)
  Sender: FDA-Public Use
  Company Number: None

PATIENT
  Age: 56 Year
  Sex: Female
  Weight: 48.6 kg

DRUGS (1)
  1. LEVOFLOXACIN [Suspect]
     Active Substance: LEVOFLOXACIN
     Indication: Respiratory tract congestion

REACTIONS (42)
  - Withdrawal syndrome [None]
  - Akathisia [None]
  - Impaired work ability [None]
  - Suicidal ideation [None]
  - Depression [None]
  - Anxiety [None]
  - Bone pain [None]
  - Tendon pain [None]
  - Agoraphobia [None]
  - Photophobia [None]
  - Hyperacusis [None]
  - Parosmia [None]
  - Walking aid user [None]
  - Cognitive disorder [None]
  - Insomnia [None]
  - Pain [None]
  - Fatigue [None]
  - Neuropathy peripheral [None]
  - Gastrointestinal disorder [None]
  - Adverse food reaction [None]
  - Sexual dysfunction [None]
  - Temperature intolerance [None]
  - Cerebral disorder [None]
  - Circadian rhythm sleep disorder [None]
  - Exercise tolerance decreased [None]
  - Gait disturbance [None]
  - Dysstasia [None]
  - Nervous system disorder [None]
  - Weight decreased [None]
  - Tooth disorder [None]
  - Alopecia [None]
  - Obsessive-compulsive disorder [None]
  - Palpitations [None]
  - Neck pain [None]
  - Spinal pain [None]
  - Dysgeusia [None]
  - Vitreous floaters [None]
  - Vision blurred [None]
  - Tic [None]
  - Tremor [None]
  - Oral discomfort [None]
  - Ill-defined disorder [None]

NARRATIVE: CASE EVENT DATE: 20190611
